FAERS Safety Report 5576155-2 (Version None)
Quarter: 2007Q4

REPORT INFORMATION
  Report Type: 
  Country: None (occurrence: None)
  Receive Date: 20071228
  Receipt Date: 20071219
  Transmission Date: 20080405
  Serious: Yes (Hospitalization)
  Sender: FDA-Public Use
  Company Number: US-JNJFOC-20071205331

PATIENT
  Sex: Female
  Weight: 83.92 kg

DRUGS (10)
  1. FENTANYL TRANSDERMAL SYSTEM [Suspect]
     Indication: PAIN
     Dosage: 2X 100 UG/HR PATCHES
     Route: 062
  2. LYRICA [Concomitant]
     Indication: NEUROPATHY
     Route: 048
  3. OXYCODONE HCL [Concomitant]
     Indication: PAIN
     Dosage: 10/325 MG TABLETS
     Route: 048
  4. ALBUTEROL [Concomitant]
     Indication: ASTHMA
     Route: 055
  5. FLOVENT HFA [Concomitant]
     Indication: ASTHMA
     Route: 055
  6. CLONAZEPAM [Concomitant]
     Route: 048
  7. SEROQUEL [Concomitant]
     Indication: DEPRESSION
     Route: 048
  8. LAMICTAL [Concomitant]
     Indication: DEPRESSION
     Route: 048
  9. LAMICTAL [Concomitant]
     Indication: ANXIETY
     Route: 048
  10. CHANTIX [Concomitant]
     Indication: SMOKING CESSATION THERAPY
     Route: 048

REACTIONS (12)
  - ANXIETY [None]
  - CONSTIPATION [None]
  - DEPRESSION [None]
  - DRY SKIN [None]
  - GASTROOESOPHAGEAL REFLUX DISEASE [None]
  - LOW DENSITY LIPOPROTEIN INCREASED [None]
  - MIGRAINE [None]
  - NEUROPATHY [None]
  - PRURITUS [None]
  - SINUS CONGESTION [None]
  - THROMBOSIS [None]
  - WRONG TECHNIQUE IN DRUG USAGE PROCESS [None]
